FAERS Safety Report 9341936 (Version 3)
Quarter: 2013Q3

REPORT INFORMATION
  Report Type: Spontaneous
  Country: US (occurrence: US)
  Receive Date: 20130611
  Receipt Date: 20130823
  Transmission Date: 20140515
  Serious: Yes (Hospitalization, Other)
  Sender: FDA-Public Use
  Company Number: US-SANOFI-AVENTIS-2013SA057180

PATIENT
  Age: 69 Year
  Sex: Female

DRUGS (8)
  1. AUBAGIO [Suspect]
     Indication: MULTIPLE SCLEROSIS
     Route: 048
     Dates: start: 20130714
  2. COREG [Concomitant]
  3. LASIX [Concomitant]
  4. GABAPENTIN [Concomitant]
  5. BACLOFEN [Concomitant]
  6. CYMBALTA [Concomitant]
  7. ACETAMINOPHEN W/HYDROCODONE [Concomitant]
  8. ASPIRIN [Concomitant]

REACTIONS (5)
  - Clostridium difficile infection [Unknown]
  - Angina pectoris [Not Recovered/Not Resolved]
  - Malaise [Not Recovered/Not Resolved]
  - Tachycardia [Unknown]
  - Hypertension [Unknown]
